FAERS Safety Report 18756364 (Version 1)
Quarter: 2021Q1

REPORT INFORMATION
  Report Type: Spontaneous
  Country: CZ (occurrence: CZ)
  Receive Date: 20210119
  Receipt Date: 20210119
  Transmission Date: 20210419
  Serious: Yes (Other)
  Sender: FDA-Public Use
  Company Number: CZ-MYLANLABS-2020M1098107

PATIENT
  Age: 45 Year
  Sex: Female

DRUGS (2)
  1. FENTANYL. [Suspect]
     Active Substance: FENTANYL
     Indication: ARTHRALGIA
     Dosage: UNK
     Route: 062
  2. TRAMADOL. [Suspect]
     Active Substance: TRAMADOL
     Indication: ARTHRALGIA
     Dosage: UNK

REACTIONS (11)
  - Medication error [Unknown]
  - Drug withdrawal syndrome [Unknown]
  - Pain [Unknown]
  - Vertigo [Unknown]
  - Drug dependence [Unknown]
  - Drug ineffective [Unknown]
  - Enthesopathy [Unknown]
  - Nausea [Unknown]
  - Arthritis [Unknown]
  - Wrong technique in product usage process [Unknown]
  - Product use issue [Unknown]
